FAERS Safety Report 4508185-3 (Version None)
Quarter: 2004Q4

REPORT INFORMATION
  Report Type: 
  Country: None (occurrence: None)
  Receive Date: 20041123
  Receipt Date: 20031107
  Transmission Date: 20050328
  Serious: No
  Sender: FDA-Public Use
  Company Number: US-GLAXOSMITHKLINE-A0438819A

PATIENT
  Age: 66 Year
  Sex: Female

DRUGS (13)
  1. WELLBUTRIN [Suspect]
     Indication: FIBROMYALGIA
     Dosage: 150MG TWICE PER DAY
     Route: 048
     Dates: start: 20030301
  2. AZULFIDINE [Concomitant]
  3. FOLIC ACID [Concomitant]
  4. LOPRESSOR [Concomitant]
  5. VASOTEC [Concomitant]
  6. ULTRACET [Concomitant]
  7. ZOCOR [Concomitant]
  8. PROTONIX [Concomitant]
  9. FLEXERIL [Concomitant]
  10. AMBIEN [Concomitant]
  11. CLONAZEPAM [Concomitant]
  12. ASPIRIN [Concomitant]
  13. GAS-X [Concomitant]

REACTIONS (3)
  - BLOOD PRESSURE INCREASED [None]
  - ERUCTATION [None]
  - FLATULENCE [None]
